FAERS Safety Report 9913089 (Version 2)
Quarter: 2014Q1

REPORT INFORMATION
  Report Type: Spontaneous
  Country: DE (occurrence: None)
  Receive Date: 20140214
  Receipt Date: 20140306
  Transmission Date: 20141002
  Serious: Yes (Disabling)
  Sender: FDA-Public Use
  Company Number: 1402-0287

PATIENT
  Age: 64 Year
  Sex: Male
  Weight: 66 kg

DRUGS (4)
  1. EYLEA [Suspect]
     Indication: AGE-RELATED MACULAR DEGENERATION
     Dosage: 2 MG, ONCE, INTRAOCULAR
     Route: 031
     Dates: start: 20130318, end: 20130318
  2. VEGAMOX (MOXIFLOXACIN HYDROCHLORIDE) (EYE DROPS) [Concomitant]
  3. FLOMOX (CEFCAPENE PIVOXIL HYDROCHLORIDE) (TABLET) [Concomitant]
  4. XYLOCAINE (LIDOCAINE) (EYE DROPS) [Concomitant]

REACTIONS (1)
  - Vitreous haemorrhage [None]
